FAERS Safety Report 9071587 (Version 1)
Quarter: 2013Q1

REPORT INFORMATION
  Report Type: Report from Study
  Country: US (occurrence: US)
  Receive Date: 20130129
  Receipt Date: 20130129
  Transmission Date: 20140127
  Serious: No
  Sender: FDA-Public Use
  Company Number: US-ABBOTT-12P-163-0929774-00

PATIENT
  Age: 33 None
  Sex: Male

DRUGS (1)
  1. HUMIRA 40 MG/ 0.8 ML PRE-FILLED SYRINGE [Suspect]
     Indication: CROHN^S DISEASE
     Route: 058
     Dates: start: 20120326, end: 20120410

REACTIONS (6)
  - Nervous system disorder [Unknown]
  - Peripheral coldness [Recovered/Resolved]
  - Undersensing [Recovered/Resolved]
  - Paraesthesia [Unknown]
  - Paraesthesia [Unknown]
  - Pain in extremity [Recovered/Resolved]
